FAERS Safety Report 23389336 (Version 1)
Quarter: 2024Q1

REPORT INFORMATION
  Report Type: Spontaneous
  Country: US (occurrence: US)
  Receive Date: 20240110
  Receipt Date: 20240110
  Transmission Date: 20240409
  Serious: No
  Sender: FDA-Public Use
  Company Number: US-REGENERON PHARMACEUTICALS, INC.-2023-028748

PATIENT
  Sex: Female

DRUGS (3)
  1. EYLEA [Suspect]
     Active Substance: AFLIBERCEPT
     Indication: Neovascular age-related macular degeneration
     Dosage: 2MG/0.05ML, EVERY 10 WEEKS, INTO RIGHT EYE; FORMULATION: GERRESHEIMER PFS
  2. EYLEA [Suspect]
     Active Substance: AFLIBERCEPT
     Indication: Choroidal neovascularisation
     Dosage: 2MG/0.05ML, EVERY 10 WEEKS, INTO LEFT EYE; FORMULATION: GERRESHEIMER PFS
  3. EYLEA [Suspect]
     Active Substance: AFLIBERCEPT
     Dosage: 2MG/0.05ML, EVERY 10 WEEKS, INTO RIGHT EYE; FORMULATION: GERRESHEIMER PFS
     Dates: start: 20230215

REACTIONS (1)
  - Visual acuity reduced [Recovered/Resolved]

NARRATIVE: CASE EVENT DATE: 20230215
